FAERS Safety Report 13773249 (Version 1)
Quarter: 2017Q3

REPORT INFORMATION
  Report Type: Spontaneous
  Country: US (occurrence: US)
  Receive Date: 20170720
  Receipt Date: 20170720
  Transmission Date: 20171127
  Serious: Yes (Other)
  Sender: FDA-Public Use
  Company Number: US-COLGATE PALMOLIVE COMPANY-20170700538

PATIENT

DRUGS (1)
  1. MEN^S SPEED STICK DEODORANT PON AVALANCHE [Suspect]
     Active Substance: COSMETICS
     Indication: PRODUCT USED FOR UNKNOWN INDICATION
     Dosage: 2 SWIPES AND ONLY 2 DAYS
     Dates: start: 20170502, end: 20170504

REACTIONS (4)
  - Axillary mass [Recovering/Resolving]
  - Pain [Recovering/Resolving]
  - Abscess [Recovering/Resolving]
  - Rash [Recovering/Resolving]

NARRATIVE: CASE EVENT DATE: 201705
